FAERS Safety Report 9202679 (Version 1)
Quarter: 2013Q2

REPORT INFORMATION
  Report Type: Spontaneous
  Country: US (occurrence: US)
  Receive Date: 20130401
  Receipt Date: 20130401
  Transmission Date: 20140414
  Serious: No
  Sender: FDA-Public Use
  Company Number: US-PFIZER INC-2013102007

PATIENT
  Age: 85 Year
  Sex: Male
  Weight: 95.24 kg

DRUGS (12)
  1. CELEBREX [Suspect]
     Indication: ARTHRALGIA
     Dosage: 200 MG, 1X/DAY
     Dates: start: 201303
  2. CELEBREX [Suspect]
     Indication: ARTHRITIS
  3. CELEBREX [Suspect]
     Indication: HIP ARTHROPLASTY
  4. HYDROCORTISONE [Suspect]
     Indication: PAIN
     Dosage: 500 MG AS NEEDED
  5. STALEVO [Concomitant]
     Indication: PARKINSON^S DISEASE
     Dosage: 100 MG, 4X/DAY
  6. CITALOPRAM [Concomitant]
     Indication: DEPRESSION
     Dosage: 60 MG, 1X/DAY
  7. PRAMIPEXOLE [Concomitant]
     Indication: RESTLESS LEGS SYNDROME
     Dosage: 1 MG, 3X/DAY
  8. PANTOPRAZOLE [Concomitant]
     Indication: GASTROOESOPHAGEAL REFLUX DISEASE
     Dosage: 40 MG, 1X/DAY
  9. AVODART [Concomitant]
     Indication: SLEEP DISORDER
     Dosage: 10 MG, 1X/DAY
  10. ALFUZOSIN [Concomitant]
     Indication: SLEEP DISORDER
     Dosage: 10 MG, 1X/DAY
  11. FLOVENT [Concomitant]
     Indication: RESPIRATORY DISORDER
     Dosage: 110 MG, 2X/DAY
  12. SEREVENT [Concomitant]
     Indication: RESPIRATORY DISORDER
     Dosage: 50 MG, 2X/DAY

REACTIONS (1)
  - Drug ineffective [Not Recovered/Not Resolved]
